FAERS Safety Report 5512504-9 (Version None)
Quarter: 2007Q4

REPORT INFORMATION
  Report Type: 
  Country: None (occurrence: None)
  Receive Date: 20071112
  Receipt Date: 20070525
  Transmission Date: 20080405
  Serious: No
  Sender: FDA-Public Use
  Company Number: A0653030A

PATIENT
  Age: 80 Year
  Sex: Female

DRUGS (8)
  1. AVANDAMET [Suspect]
     Dosage: 2TAB TWICE PER DAY
     Route: 048
     Dates: start: 20060101
  2. AVANDIA [Suspect]
     Dosage: 2MG UNKNOWN
     Route: 048
  3. COUMADIN [Concomitant]
  4. VITAMIN D [Concomitant]
  5. CALCIUM [Concomitant]
  6. MULTI-VITAMIN [Concomitant]
  7. COZAAR [Concomitant]
  8. PRAVASTATIN [Concomitant]

REACTIONS (3)
  - ALOPECIA [None]
  - TREMOR [None]
  - VISUAL DISTURBANCE [None]
